FAERS Safety Report 6387991-7 (Version None)
Quarter: 2009Q3

REPORT INFORMATION
  Report Type: 
  Country: None (occurrence: None)
  Receive Date: 20090930
  Receipt Date: 20090918
  Transmission Date: 20100115
  Serious: Yes (Life-Threatening)
  Sender: FDA-Public Use
  Company Number: 007629

PATIENT
  Age: 77 Year
  Sex: Female

DRUGS (8)
  1. PLETAL [Suspect]
     Dosage: 100 MG, BID
     Route: 048
     Dates: start: 20090806, end: 20090911
  2. LIPITOR [Concomitant]
  3. SELBEX (TEPRENONE) [Concomitant]
  4. FAMOTIDINE [Concomitant]
  5. BIOFERMIN (LACTOMIN) [Concomitant]
  6. AMLODIN OD [Concomitant]
  7. SYMMETREL (AMMANTADINE HYDROCHLORIDE) [Concomitant]
  8. STANZOME OD (LANSOPRAZOLE) [Concomitant]

REACTIONS (1)
  - PULMONARY ALVEOLAR HAEMORRHAGE [None]
